FAERS Safety Report 13613774 (Version 1)
Quarter: 2017Q2

REPORT INFORMATION
  Report Type: Spontaneous
  Country: FR (occurrence: FR)
  Receive Date: 20170606
  Receipt Date: 20170606
  Transmission Date: 20170830
  Serious: Yes (Other)
  Sender: FDA-Public Use
  Company Number: FR-BAYER-2017-100427

PATIENT
  Age: 38 Year
  Sex: Female

DRUGS (1)
  1. MIRENA [Suspect]
     Active Substance: LEVONORGESTREL
     Dosage: 20 MCG/24HR, CONT
     Route: 015
     Dates: end: 201701

REACTIONS (8)
  - Depression [Recovering/Resolving]
  - Cyst [Unknown]
  - Loss of libido [Recovered/Resolved]
  - Breast pain [Unknown]
  - Anxiety [Recovering/Resolving]
  - Diffuse alopecia [Unknown]
  - Back pain [Unknown]
  - Mastitis [Recovered/Resolved]

NARRATIVE: CASE EVENT DATE: 2015
